FAERS Safety Report 17248056 (Version 1)
Quarter: 2020Q1

REPORT INFORMATION
  Report Type: Spontaneous
  Country: US (occurrence: US)
  Receive Date: 20200108
  Receipt Date: 20200108
  Transmission Date: 20200409
  Serious: No
  Sender: FDA-Public Use
  Company Number: US-SA-2020SA004627

PATIENT
  Age: 57 Year
  Sex: Male

DRUGS (2)
  1. LUMIZYME [Suspect]
     Active Substance: ALGLUCOSIDASE ALFA
     Indication: GLYCOGEN STORAGE DISEASE TYPE II
     Dosage: 2000 UG; EVERY TWO QUARTERS
     Route: 065
     Dates: start: 20151207, end: 20191205
  2. LUMIZYME [Suspect]
     Active Substance: ALGLUCOSIDASE ALFA
     Dosage: 2000 UNK; FREQUENCY: EVERY TWO QUARTERS
     Route: 065

REACTIONS (2)
  - Drug dose omission by device [Unknown]
  - Device issue [Unknown]
